FAERS Safety Report 7343704-3 (Version None)
Quarter: 2011Q1

REPORT INFORMATION
  Report Type: 
  Country: None (occurrence: None)
  Receive Date: 20110310
  Receipt Date: 20101108
  Transmission Date: 20110831
  Serious: No
  Sender: FDA-Public Use
  Company Number: A0891953A

PATIENT
  Age: 67 Year
  Sex: Male

DRUGS (1)
  1. NICORETTE (MINT) [Suspect]

REACTIONS (2)
  - PRODUCT QUALITY ISSUE [None]
  - DRUG ADMINISTRATION ERROR [None]
